FAERS Safety Report 17430420 (Version 1)
Quarter: 2020Q1

REPORT INFORMATION
  Report Type: Spontaneous
  Country: US (occurrence: US)
  Receive Date: 20200216
  Receipt Date: 20200216
  Transmission Date: 20200409
  Serious: Yes (Disabling)
  Sender: FDA-Public Use
  Company Number: None

PATIENT
  Age: 33 Year
  Sex: Female
  Weight: 80 kg

DRUGS (1)
  1. TENUATE [Suspect]
     Active Substance: DIETHYLPROPION HYDROCHLORIDE
     Indication: WEIGHT DECREASED

REACTIONS (2)
  - Ocular hyperaemia [None]
  - Eye inflammation [None]

NARRATIVE: CASE EVENT DATE: 20191009
